FAERS Safety Report 18894340 (Version 1)
Quarter: 2021Q1

REPORT INFORMATION
  Report Type: Spontaneous
  Country: CA (occurrence: CA)
  Receive Date: 20210215
  Receipt Date: 20210215
  Transmission Date: 20210420
  Serious: Yes (Other)
  Sender: FDA-Public Use
  Company Number: CA-PFIZER INC-2020197689

PATIENT
  Age: 72 Year
  Sex: Female

DRUGS (6)
  1. KEYTRUDA [Concomitant]
     Active Substance: PEMBROLIZUMAB
     Indication: RENAL CELL CARCINOMA
     Dosage: UNK (FOR 30 DAYS )
  2. INLYTA [Suspect]
     Active Substance: AXITINIB
     Indication: RENAL CELL CARCINOMA
     Dosage: 5 MG, 2X/DAY FOR 30 DAYS
     Route: 048
     Dates: start: 20200605
  3. SYNTHROID [Concomitant]
     Active Substance: LEVOTHYROXINE SODIUM
     Dosage: UNK
  4. IBRANCE [Concomitant]
     Active Substance: PALBOCICLIB
     Dosage: UNK
     Dates: start: 20200605
  5. CODEINE [Concomitant]
     Active Substance: CODEINE
     Dosage: UNK
  6. IRBESARTAN. [Concomitant]
     Active Substance: IRBESARTAN
     Dosage: UNK

REACTIONS (10)
  - Product use in unapproved indication [Unknown]
  - Pain [Unknown]
  - Off label use [Unknown]
  - Mobility decreased [Unknown]
  - Spinal pain [Recovered/Resolved]
  - Headache [Recovered/Resolved]
  - Nasal discomfort [Recovered/Resolved]
  - Blood pressure increased [Unknown]
  - Breast mass [Unknown]
  - Arthralgia [Recovered/Resolved]
